FAERS Safety Report 13290470 (Version 1)
Quarter: 2017Q1

REPORT INFORMATION
  Report Type: Spontaneous
  Country: NL (occurrence: NL)
  Receive Date: 20170302
  Receipt Date: 20170302
  Transmission Date: 20170428
  Serious: Yes (Other)
  Sender: FDA-Public Use
  Company Number: NL-AMGEN-NLDSP2017029081

PATIENT
  Age: 51 Year
  Sex: Female

DRUGS (7)
  1. XGEVA [Suspect]
     Active Substance: DENOSUMAB
     Indication: METASTASES TO BONE
     Dosage: 120 MG/1.7 ML, UNK
     Route: 065
     Dates: start: 201605
  2. TAMOXIFEN [Concomitant]
     Active Substance: TAMOXIFEN
     Dosage: 20 MG, 1 DF
     Dates: start: 201605
  3. PERTUZUMAB [Concomitant]
     Active Substance: PERTUZUMAB
     Dosage: 1 DF, UNK
     Dates: start: 201605
  4. TRASTUZUMAB [Concomitant]
     Active Substance: TRASTUZUMAB
     Dosage: 1 DF, UNK
     Dates: start: 201605
  5. LUCRIN PDS [Concomitant]
     Active Substance: LEUPROLIDE ACETATE
     Dosage: 1 DF, UNK
     Dates: start: 201605
  6. PACLITAXEL. [Concomitant]
     Active Substance: PACLITAXEL
  7. LEUPRORELIN [Concomitant]
     Active Substance: LEUPROLIDE ACETATE

REACTIONS (2)
  - Arthralgia [Unknown]
  - Tibia fracture [Unknown]

NARRATIVE: CASE EVENT DATE: 201701
